FAERS Safety Report 9958594 (Version 2)
Quarter: 2014Q1

REPORT INFORMATION
  Report Type: Spontaneous
  Country: KR (occurrence: KR)
  Receive Date: 20140305
  Receipt Date: 20140305
  Transmission Date: 20141002
  Serious: Yes (Hospitalization)
  Sender: FDA-Public Use
  Company Number: KR-ACCORD-022202

PATIENT
  Age: 35 Year
  Sex: Male

DRUGS (1)
  1. FINASTERIDE [Suspect]
     Indication: ANDROGENETIC ALOPECIA
     Dosage: STARTED BEFORE 4 MONTHS OF SYMPTOMS DEVELOPED

REACTIONS (2)
  - Ophthalmoplegia [Recovered/Resolved]
  - Myopathy [Recovered/Resolved]
